FAERS Safety Report 7989237-2 (Version None)
Quarter: 2011Q4

REPORT INFORMATION
  Report Type: 
  Country: None (occurrence: None)
  Receive Date: 20111219
  Receipt Date: 20111213
  Transmission Date: 20120403
  Serious: Yes (Hospitalization)
  Sender: FDA-Public Use
  Company Number: IT-TEVA-313855ISR

PATIENT
  Sex: Male

DRUGS (8)
  1. NORVASC [Concomitant]
  2. VINCRISTINE [Suspect]
     Indication: DIFFUSE LARGE B-CELL LYMPHOMA
     Route: 042
     Dates: start: 20111114, end: 20111114
  3. OMEPRAZOLE [Concomitant]
  4. PREDNISONE TAB [Concomitant]
  5. LASIX [Concomitant]
  6. METHYLPREDNISOLONE [Concomitant]
  7. DOXORUBICIN HCL [Suspect]
     Indication: DIFFUSE LARGE B-CELL LYMPHOMA
     Dosage: 50 MILLIGRAM;
     Route: 042
     Dates: start: 20111114, end: 20111114
  8. CLEXANE T [Concomitant]
     Route: 058

REACTIONS (4)
  - NEUTROPENIA [None]
  - HYPOKALAEMIA [None]
  - THROMBOCYTOPENIA [None]
  - ATRIAL FIBRILLATION [None]
